FAERS Safety Report 19764293 (Version 1)
Quarter: 2021Q3

REPORT INFORMATION
  Report Type: Spontaneous
  Country: CN (occurrence: CN)
  Receive Date: 20210831
  Receipt Date: 20210831
  Transmission Date: 20211014
  Serious: Yes (Other)
  Sender: FDA-Public Use
  Company Number: CN-ASTRAZENECA-2021A699043

PATIENT
  Age: 64 Year
  Sex: Male
  Weight: 56 kg

DRUGS (3)
  1. SODIUM CHLORIDE. [Concomitant]
     Active Substance: SODIUM CHLORIDE
     Indication: PRODUCTIVE COUGH
     Route: 055
     Dates: start: 20210813, end: 20210813
  2. BUDESONIDE. [Suspect]
     Active Substance: BUDESONIDE
     Indication: PRODUCTIVE COUGH
     Route: 055
     Dates: start: 20210812, end: 20210813
  3. AMBROXOL HYDROCHLORIDE [Suspect]
     Active Substance: AMBROXOL HYDROCHLORIDE
     Indication: PRODUCTIVE COUGH
     Route: 055
     Dates: start: 20210813, end: 20210813

REACTIONS (2)
  - Dyspnoea [Recovered/Resolved]
  - Chest discomfort [Recovered/Resolved]

NARRATIVE: CASE EVENT DATE: 20210813
